FAERS Safety Report 4286263-4 (Version None)
Quarter: 2004Q1

REPORT INFORMATION
  Report Type: 
  Country: None (occurrence: None)
  Receive Date: 20040205
  Receipt Date: 20040205
  Transmission Date: 20041129
  Serious: Yes (Hospitalization)
  Sender: FDA-Public Use
  Company Number: None

PATIENT
  Age: 59 Year
  Sex: Male
  Weight: 145.4 kg

DRUGS (11)
  1. MINOXIDIL [Suspect]
     Indication: HYPERTENSION
     Dosage: 2.5 G QD
  2. ALBUTEROL [Concomitant]
  3. AMITRIPTYLINE HCL [Concomitant]
  4. ASPIRIN [Concomitant]
  5. FELODIPINE [Concomitant]
  6. FOSINOPRIL SODIUM [Concomitant]
  7. HYDROCHLOROTHIAZIDE [Concomitant]
  8. SULINDAC [Concomitant]
  9. INSULIN [Concomitant]
  10. LOVASTATIN [Concomitant]
  11. METFORMIN HCL [Concomitant]

REACTIONS (6)
  - ASTHMA [None]
  - CREPITATIONS [None]
  - DYSPNOEA [None]
  - FLUID RETENTION [None]
  - OEDEMA PERIPHERAL [None]
  - WHEEZING [None]
